FAERS Safety Report 9609295 (Version 1)
Quarter: 2013Q4

REPORT INFORMATION
  Report Type: Spontaneous
  Country: OM (occurrence: OM)
  Receive Date: 20131009
  Receipt Date: 20131009
  Transmission Date: 20140711
  Serious: Yes (Other)
  Sender: FDA-Public Use
  Company Number: OM-B.I. PHARMACEUTICALS,INC./RIDGEFIELD-2013-BI-31307GD

PATIENT
  Age: 83 Year
  Sex: Female

DRUGS (8)
  1. DIPYRIDAMOLE [Suspect]
     Indication: CEREBROVASCULAR ACCIDENT
     Dosage: 225 MG
     Dates: start: 201102
  2. DIPYRIDAMOLE [Suspect]
     Indication: CEREBRAL INFARCTION
  3. ASPIRIN [Suspect]
     Indication: CEREBROVASCULAR ACCIDENT
     Dosage: 75 MG
     Dates: start: 201102
  4. ASPIRIN [Suspect]
     Indication: CEREBRAL INFARCTION
  5. HEPARIN [Suspect]
     Indication: ATRIAL FIBRILLATION
     Dates: start: 201102
  6. CEFTAZIDIME [Concomitant]
     Indication: LOWER RESPIRATORY TRACT INFECTION
     Dates: start: 201102
  7. OMEPRAZOLE [Concomitant]
     Route: 048
  8. DIGOXIN [Concomitant]
     Indication: ATRIAL FIBRILLATION
     Route: 048
     Dates: start: 201102

REACTIONS (9)
  - Pneumonia aspiration [Unknown]
  - Sepsis [Unknown]
  - Melaena [Unknown]
  - Atrial fibrillation [Unknown]
  - Dyspnoea [Unknown]
  - Hypoxia [Unknown]
  - Hypotension [Unknown]
  - Pyrexia [Unknown]
  - Local swelling [Unknown]
